FAERS Safety Report 6473298-6 (Version None)
Quarter: 2009Q4

REPORT INFORMATION
  Report Type: 
  Country: None (occurrence: None)
  Receive Date: 20091204
  Receipt Date: 20081119
  Transmission Date: 20100525
  Serious: Yes (Hospitalization, Other)
  Sender: FDA-Public Use
  Company Number: CA-ELI_LILLY_AND_COMPANY-CA200807002622

PATIENT
  Sex: Female
  Weight: 47.619 kg

DRUGS (11)
  1. FORTEO [Suspect]
     Indication: OSTEOPOROSIS
     Dosage: 20 UG, DAILY (1/D)
     Route: 058
     Dates: start: 20070911, end: 20080417
  2. FORTEO [Suspect]
     Dosage: 20 UG, DAILY (1/D)
     Route: 058
     Dates: start: 20080601
  3. SPIRIVA [Concomitant]
  4. SEREVENT [Concomitant]
     Route: 055
  5. BISOPROLOL [Concomitant]
  6. ZYPREXA [Concomitant]
  7. MIRTAZAPINE [Concomitant]
  8. RATIO-SALBUTAMOL HFA [Concomitant]
  9. ASAPHEN [Concomitant]
  10. LIPITOR [Concomitant]
  11. CARBOCAL D [Concomitant]

REACTIONS (3)
  - CORONARY ARTERY THROMBOSIS [None]
  - MYOCARDIAL INFARCTION [None]
  - NAUSEA [None]
